FAERS Safety Report 6882513-6 (Version None)
Quarter: 2010Q3

REPORT INFORMATION
  Report Type: 
  Country: None (occurrence: None)
  Receive Date: 20100729
  Receipt Date: 20100720
  Transmission Date: 20110219
  Serious: Yes (Hospitalization)
  Sender: FDA-Public Use
  Company Number: AU-ASTRAZENECA-2010SE34593

PATIENT
  Age: 82 Year
  Sex: Male

DRUGS (8)
  1. OMEPRAL [Suspect]
     Route: 048
  2. CRESTOR [Suspect]
     Route: 048
     Dates: start: 20100315
  3. CARDIPRIN [Suspect]
     Dosage: 100
  4. KARVEZIDE [Suspect]
     Dosage: 150/12.5
  5. MELOXICAM [Suspect]
  6. PRAZOSIN HYDROCHLORIDE [Suspect]
  7. PROGOUT [Suspect]
  8. SAW PALMETTO [Suspect]

REACTIONS (6)
  - ALANINE AMINOTRANSFERASE INCREASED [None]
  - ASPARTATE AMINOTRANSFERASE INCREASED [None]
  - BLOOD CREATINE PHOSPHOKINASE INCREASED [None]
  - LIVER INJURY [None]
  - RENAL FAILURE ACUTE [None]
  - TROPONIN T INCREASED [None]
